FAERS Safety Report 4525799-5 (Version None)
Quarter: 2004Q4

REPORT INFORMATION
  Report Type: 
  Country: None (occurrence: None)
  Receive Date: 20041116
  Receipt Date: 20040910
  Transmission Date: 20050328
  Serious: Yes (Other)
  Sender: FDA-Public Use
  Company Number: S04-USA-06056-02

PATIENT
  Sex: Female

DRUGS (1)
  1. NAMENDA [Suspect]

REACTIONS (1)
  - TRANSIENT ISCHAEMIC ATTACK [None]
